FAERS Safety Report 24140606 (Version 1)
Quarter: 2024Q3

REPORT INFORMATION
  Report Type: Other
  Country: IN (occurrence: IN)
  Receive Date: 20240726
  Receipt Date: 20240726
  Transmission Date: 20241016
  Serious: Yes (Hospitalization)
  Sender: APPCO PHARMA
  Company Number: IN-Appco Pharma LLC-2159636

PATIENT
  Age: 56 Year
  Sex: Male

DRUGS (4)
  1. CHLORPROMAZINE [Suspect]
     Active Substance: CHLORPROMAZINE
     Indication: Mental disorder
     Route: 065
  2. RISPERIDONE [Suspect]
     Active Substance: RISPERIDONE
     Route: 065
  3. VALPROATE SODIUM [Concomitant]
     Active Substance: VALPROATE SODIUM
     Route: 065
  4. TRIHEXYPHENIDYL HYDROCHLORIDE [Concomitant]
     Active Substance: TRIHEXYPHENIDYL HYDROCHLORIDE
     Route: 065

REACTIONS (1)
  - Parkinsonism [Not Recovered/Not Resolved]
